FAERS Safety Report 4520039-5 (Version None)
Quarter: 2004Q4

REPORT INFORMATION
  Report Type: 
  Country: None (occurrence: None)
  Receive Date: 20041027
  Receipt Date: 20040518
  Transmission Date: 20050328
  Serious: No
  Sender: FDA-Public Use
  Company Number: US076933

PATIENT
  Sex: Female

DRUGS (2)
  1. SENSIPAR [Suspect]
     Indication: HYPERPARATHYROIDISM PRIMARY
     Dosage: 30 MG, 2  IN 1 DAYS, PO
     Route: 048
     Dates: start: 20040514
  2. ERGOCALCIFEROL [Concomitant]

REACTIONS (2)
  - PHARYNGITIS [None]
  - UPPER RESPIRATORY TRACT INFECTION [None]
